FAERS Safety Report 9350936 (Version 2)
Quarter: 2013Q2

REPORT INFORMATION
  Report Type: Report from Study
  Country: CH (occurrence: CH)
  Receive Date: 20130617
  Receipt Date: 20130626
  Transmission Date: 20140414
  Serious: Yes (Hospitalization)
  Sender: FDA-Public Use
  Company Number: CH-GENZYME-CLOF-1002677

PATIENT
  Age: 62 Year
  Sex: Female
  Weight: 94 kg

DRUGS (4)
  1. EVOLTRA [Suspect]
     Indication: ACUTE MYELOID LEUKAEMIA
     Dosage: 20 MG, UNK
     Route: 042
     Dates: start: 20120927, end: 20121001
  2. CYTARABINE [Suspect]
     Indication: ACUTE MYELOID LEUKAEMIA
     Dosage: 2000 MG, BID
     Route: 042
     Dates: start: 20120927, end: 20121002
  3. AMSACRINE [Suspect]
     Indication: ACUTE MYELOID LEUKAEMIA
     Dosage: 240 MG, UNK
     Route: 042
     Dates: start: 20120930, end: 20121002
  4. CEFEPIME [Concomitant]
     Indication: MUCOSAL INFLAMMATION
     Dosage: 2 G, TID
     Route: 042
     Dates: start: 20120928

REACTIONS (1)
  - Dermatitis bullous [Recovered/Resolved]
